FAERS Safety Report 15127242 (Version 1)
Quarter: 2018Q3

REPORT INFORMATION
  Report Type: Report from Study
  Country: DE (occurrence: DE)
  Receive Date: 20180710
  Receipt Date: 20180710
  Transmission Date: 20181010
  Serious: Yes (Life-Threatening, Hospitalization)
  Sender: FDA-Public Use
  Company Number: DE-TEVA-2018-DE-923081

PATIENT
  Age: 72 Year
  Sex: Male
  Weight: 88 kg

DRUGS (14)
  1. BELOC?ZOK MITE [Concomitant]
     Active Substance: METOPROLOL SUCCINATE
     Dosage: 2 DOSAGE FORMS DAILY;
     Route: 065
     Dates: start: 20130427
  2. CARBOPLATIN. [Suspect]
     Active Substance: CARBOPLATIN
     Indication: NON-SMALL CELL LUNG CANCER
     Dosage: AUC 5
     Route: 042
     Dates: start: 20130402, end: 20130402
  3. MERONEM [Concomitant]
     Active Substance: MEROPENEM
     Route: 065
     Dates: start: 20130422, end: 20130507
  4. ACC [Concomitant]
     Active Substance: ACETYLCYSTEINE
     Dosage: 600 MILLIGRAM DAILY;
     Route: 048
     Dates: start: 20130430
  5. SIMVASTATIN. [Concomitant]
     Active Substance: SIMVASTATIN
     Indication: HYPERLIPIDAEMIA
     Dosage: 20 MILLIGRAM DAILY;
     Route: 048
     Dates: start: 20020101
  6. DIGOXIN?SPECIFIC ANTIBODY FRAGMENTS [Concomitant]
     Active Substance: DIGOXIN
  7. LOCOL (GERMANY) [Concomitant]
     Dosage: 40 MILLIGRAM DAILY;
     Route: 048
     Dates: start: 20130430
  8. CAPTOPRIL. [Concomitant]
     Active Substance: CAPTOPRIL
     Indication: HYPERTENSION
     Dosage: 100 MILLIGRAM DAILY;
     Route: 048
     Dates: start: 20020101
  9. MOTILIUM [Concomitant]
     Active Substance: DOMPERIDONE
     Dosage: 4 ML DAILY;
     Route: 048
     Dates: start: 20130430, end: 20130515
  10. BIFITERAL [Concomitant]
     Active Substance: LACTULOSE
     Dosage: 10 ML DAILY;
     Route: 048
     Dates: start: 20130430
  11. MUCOSOLVAN [Concomitant]
     Active Substance: AMBROXOL HYDROCHLORIDE
     Dosage: DAILY DOSE: 15 MG MILLGRAM(S) EVERY 3 DAYS
     Route: 042
     Dates: start: 20130430, end: 20130515
  12. PASPERTIN (METOCLOPRAMIDE HYDROCHLORIDE) [Concomitant]
     Dosage: 3 X DAILY.
     Route: 042
     Dates: start: 20130430, end: 20130515
  13. PEMETREXED DISODIUM [Suspect]
     Active Substance: PEMETREXED DISODIUM
     Indication: NON-SMALL CELL LUNG CANCER
     Route: 042
     Dates: start: 20130402, end: 20130402
  14. AVASTIN [Suspect]
     Active Substance: BEVACIZUMAB
     Indication: NON-SMALL CELL LUNG CANCER
     Route: 042
     Dates: start: 20130402, end: 20130402

REACTIONS (7)
  - Infection [Recovered/Resolved]
  - Haemothorax [Recovered/Resolved]
  - Pneumonia [Recovered/Resolved with Sequelae]
  - General physical health deterioration [Recovered/Resolved with Sequelae]
  - Hypertension [Unknown]
  - Anxiety [Unknown]
  - Tumour necrosis [Recovered/Resolved with Sequelae]

NARRATIVE: CASE EVENT DATE: 20130423
